FAERS Safety Report 7153381-2 (Version None)
Quarter: 2010Q4

REPORT INFORMATION
  Report Type: 
  Country: None (occurrence: None)
  Receive Date: 20101213
  Receipt Date: 20101203
  Transmission Date: 20110411
  Serious: Yes (Other)
  Sender: FDA-Public Use
  Company Number: US-JNJFOC-20101203239

PATIENT
  Age: 52 Year
  Sex: Male
  Weight: 74.84 kg

DRUGS (10)
  1. IMODIUM A-D [Suspect]
     Route: 048
  2. IMODIUM A-D [Suspect]
     Indication: DIARRHOEA
     Dosage: 2 CAPLETS EVERY 4 HOURS
     Route: 048
  3. NEURPATH-B [Concomitant]
     Indication: NERVOUSNESS
  4. PRILOSEC [Concomitant]
     Indication: DYSPEPSIA
  5. ZANTAC [Concomitant]
     Indication: DYSPEPSIA
  6. EFFEXOR [Concomitant]
     Indication: DEPRESSION
  7. CLONAZEPAM [Concomitant]
     Indication: NERVOUSNESS
  8. LUNESTA [Concomitant]
     Indication: INSOMNIA
  9. GABAPENTIN [Concomitant]
     Indication: NERVOUS SYSTEM DISORDER
  10. OXYCONTIN [Concomitant]
     Indication: PAIN

REACTIONS (5)
  - DYSURIA [None]
  - INAPPROPRIATE SCHEDULE OF DRUG ADMINISTRATION [None]
  - OVERDOSE [None]
  - PARANOIA [None]
  - SUICIDAL IDEATION [None]
